FAERS Safety Report 7935663-7 (Version None)
Quarter: 2011Q4

REPORT INFORMATION
  Report Type: 
  Country: None (occurrence: None)
  Receive Date: 20111123
  Receipt Date: 20111111
  Transmission Date: 20120403
  Serious: Yes (Hospitalization, Disabling)
  Sender: FDA-Public Use
  Company Number: US-ELI_LILLY_AND_COMPANY-US201111004892

PATIENT
  Sex: Female

DRUGS (6)
  1. HUMALOG MIX 50/50 [Suspect]
     Dosage: 10 U, EACH EVENING
     Dates: start: 20110201
  2. HUMALOG MIX 50/50 [Suspect]
     Indication: DIABETES MELLITUS
     Dosage: 50 U, BID
     Dates: start: 20110201
  3. HUMULIN N [Suspect]
     Indication: DIABETES MELLITUS
     Dosage: UNK, UNKNOWN
     Dates: start: 19860101, end: 20110201
  4. HUMULIN R [Suspect]
     Indication: DIABETES MELLITUS
     Dosage: UNK, UNKNOWN
     Dates: start: 19860101, end: 20050403
  5. HUMALOG MIX 50/50 [Suspect]
     Dosage: 50 U, BID
     Dates: start: 20110201
  6. HUMALOG MIX 50/50 [Suspect]
     Dosage: 10 U, EACH EVENING

REACTIONS (7)
  - UPPER LIMB FRACTURE [None]
  - MOBILITY DECREASED [None]
  - INJECTION SITE HAEMATOMA [None]
  - CATARACT [None]
  - VISUAL ACUITY REDUCED [None]
  - FALL [None]
  - DIABETIC NEUROPATHY [None]
